FAERS Safety Report 12104828 (Version 3)
Quarter: 2016Q2

REPORT INFORMATION
  Report Type: Spontaneous
  Country: US (occurrence: US)
  Receive Date: 20160223
  Receipt Date: 20160429
  Transmission Date: 20160815
  Serious: No
  Sender: FDA-Public Use
  Company Number: US-PFIZER INC-2016090208

PATIENT
  Age: 72 Year
  Sex: Female
  Weight: 77 kg

DRUGS (2)
  1. IBRANCE [Suspect]
     Active Substance: PALBOCICLIB
     Indication: NEOPLASM MALIGNANT
     Dosage: 125 MG, CYCLIC, (1 CAPSULE FOR 21 DAYS THE OFF 7 DAYS)
     Dates: start: 20160118, end: 20160301
  2. LETROZOLE. [Suspect]
     Active Substance: LETROZOLE
     Dosage: 2.5 MG, DAILY (1 TABLET )
     Dates: start: 20160210

REACTIONS (3)
  - Disease progression [Unknown]
  - Dizziness [Not Recovered/Not Resolved]
  - Neoplasm malignant [Unknown]

NARRATIVE: CASE EVENT DATE: 20160118
